FAERS Safety Report 4519553-8 (Version None)
Quarter: 2004Q4

REPORT INFORMATION
  Report Type: 
  Country: None (occurrence: None)
  Receive Date: 20041126
  Receipt Date: 20041111
  Transmission Date: 20050328
  Serious: Yes (Other)
  Sender: FDA-Public Use
  Company Number: 601634

PATIENT
  Age: 18 Year
  Sex: Female
  Weight: 58 kg

DRUGS (5)
  1. GAMMAGARD S/D [Suspect]
     Indication: MULTIPLE SCLEROSIS
     Dosage: 0.9 GM; QM; INTRAVENOUS
     Route: 042
     Dates: start: 20041110, end: 20041110
  2. DIANE MITE [Concomitant]
  3. 3 LEAD TRANSFER SET [Concomitant]
  4. 500ML EVA TPN CONTAINER [Concomitant]
  5. INFUSION SET 270CM [Concomitant]

REACTIONS (8)
  - ANAPHYLACTIC REACTION [None]
  - COUGH [None]
  - FLUSHING [None]
  - HYPERHIDROSIS [None]
  - PARAESTHESIA [None]
  - PETECHIAE [None]
  - TACHYCARDIA [None]
  - VOMITING [None]
